FAERS Safety Report 19103172 (Version 2)
Quarter: 2021Q2

REPORT INFORMATION
  Report Type: Spontaneous
  Country: JP (occurrence: JP)
  Receive Date: 20210407
  Receipt Date: 20210426
  Transmission Date: 20210717
  Serious: Yes (Other)
  Sender: FDA-Public Use
  Company Number: JP-ELI_LILLY_AND_COMPANY-JP202104001666

PATIENT
  Age: 89 Year
  Sex: Male
  Weight: 55 kg

DRUGS (5)
  1. LIMAPROST ALFADEX [Concomitant]
     Active Substance: LIMAPROST
     Indication: LUMBAR SPINAL STENOSIS
     Dosage: 1 DOSAGE FORM, TID
     Route: 048
     Dates: start: 20210210
  2. ALINAMIN F [FURSULTIAMINE] [Concomitant]
     Active Substance: FURSULTIAMINE
     Indication: BACK PAIN
     Dosage: 1 DOSAGE FORM, BID
     Route: 048
     Dates: start: 20210203
  3. DULOXETINE HYDROCHLORIDE. [Suspect]
     Active Substance: DULOXETINE HYDROCHLORIDE
     Indication: BACK PAIN
     Dosage: 20 MG, DAILY
     Route: 048
     Dates: start: 20210203
  4. DULOXETINE HYDROCHLORIDE. [Suspect]
     Active Substance: DULOXETINE HYDROCHLORIDE
     Dosage: 60 MG, DAILY
     Route: 048
     Dates: start: 20210220
  5. DULOXETINE HYDROCHLORIDE. [Suspect]
     Active Substance: DULOXETINE HYDROCHLORIDE
     Dosage: 40 MG, DAILY
     Route: 048
     Dates: start: 20210210

REACTIONS (5)
  - Hand fracture [Not Recovered/Not Resolved]
  - Parkinsonism [Unknown]
  - Parkinsonian gait [Unknown]
  - Fall [Recovered/Resolved]
  - Lumbar spinal stenosis [Unknown]

NARRATIVE: CASE EVENT DATE: 20210220
